FAERS Safety Report 4431876-X (Version None)
Quarter: 2004Q3

REPORT INFORMATION
  Report Type: 
  Country: None (occurrence: None)
  Receive Date: 20040819
  Receipt Date: 20040805
  Transmission Date: 20050211
  Serious: Yes (Death, Hospitalization)
  Sender: FDA-Public Use
  Company Number: F01200402352

PATIENT
  Age: 63 Year
  Sex: Male

DRUGS (2)
  1. (OXALIPLATIN) - SOLUTION - 140 MG [Suspect]
     Indication: NON-SMALL CELL LUNG CANCER
     Dosage: 140 MG Q2W, 200 MG Q2W
     Route: 042
     Dates: start: 20040721, end: 20040721
  2. GEMCITABINE - SOLUTION - 2000 MG [Suspect]
     Dosage: 2000 MG Q2W
     Route: 042
     Dates: start: 20040721, end: 20040721

REACTIONS (11)
  - ALANINE AMINOTRANSFERASE INCREASED [None]
  - ASPARTATE AMINOTRANSFERASE INCREASED [None]
  - BLOOD ALKALINE PHOSPHATASE INCREASED [None]
  - BLOOD CREATININE INCREASED [None]
  - DYSPNOEA [None]
  - GAMMA-GLUTAMYLTRANSFERASE INCREASED [None]
  - INTERSTITIAL LUNG DISEASE [None]
  - LIVER FUNCTION TEST ABNORMAL [None]
  - NEOPLASM PROGRESSION [None]
  - PERICARDIAL EFFUSION [None]
  - PNEUMONIA [None]
